FAERS Safety Report 23750371 (Version 4)
Quarter: 2024Q2

REPORT INFORMATION
  Report Type: Report from Study
  Country: FR (occurrence: FR)
  Receive Date: 20240417
  Receipt Date: 20240514
  Transmission Date: 20240715
  Serious: Yes (Hospitalization, Other)
  Sender: FDA-Public Use
  Company Number: FR-ABBVIE-5720910

PATIENT
  Age: 81 Year
  Sex: Male

DRUGS (2)
  1. CARBIDOPA\LEVODOPA [Suspect]
     Active Substance: CARBIDOPA\LEVODOPA
     Indication: Parkinson^s disease
     Route: 050
     Dates: start: 20210830
  2. CARBIDOPA\LEVODOPA [Suspect]
     Active Substance: CARBIDOPA\LEVODOPA

REACTIONS (7)
  - Haematuria [Not Recovered/Not Resolved]
  - Bradykinesia [Unknown]
  - Fatigue [Unknown]
  - Secretion discharge [Unknown]
  - Agitation [Recovering/Resolving]
  - Device breakage [Unknown]
  - Bladder cancer [Unknown]

NARRATIVE: CASE EVENT DATE: 20240401
